FAERS Safety Report 8604369-3 (Version None)
Quarter: 2012Q3

REPORT INFORMATION
  Report Type: 
  Country: None (occurrence: None)
  Receive Date: 20120820
  Receipt Date: 20120809
  Transmission Date: 20120928
  Serious: Yes (Hospitalization)
  Sender: FDA-Public Use
  Company Number: US-BAYER-2012-032430

PATIENT
  Age: 32 Year
  Sex: Female
  Weight: 51.247 kg

DRUGS (4)
  1. YAZ [Suspect]
     Indication: CONTRACEPTION
     Dosage: UNK
     Dates: start: 20071126, end: 20080401
  2. MULTI-VITAMIN [Concomitant]
     Dosage: DAILY
  3. ACETAMINOPHEN [Concomitant]
     Indication: MUSCLE SPASMS
  4. ACETAMINOPHEN [Concomitant]
     Indication: HEADACHE
     Dosage: 500 MG, 2 DAILY
     Dates: start: 20080325, end: 20080328

REACTIONS (8)
  - CHOLECYSTITIS ACUTE [None]
  - FLANK PAIN [None]
  - BILIARY COLIC [None]
  - GALLBLADDER DISORDER [None]
  - PAIN [None]
  - BACK PAIN [None]
  - INJURY [None]
  - ABDOMINAL PAIN UPPER [None]
